FAERS Safety Report 24735543 (Version 1)
Quarter: 2024Q4

REPORT INFORMATION
  Report Type: Spontaneous
  Country: TR (occurrence: TR)
  Receive Date: 20241216
  Receipt Date: 20241216
  Transmission Date: 20250115
  Serious: Yes (Other)
  Sender: Teyro Labs
  Company Number: TR-TEYRO-2024-TY-000942

PATIENT
  Age: 69 Month

DRUGS (4)
  1. CARBOPLATIN [Suspect]
     Active Substance: CARBOPLATIN
     Indication: Optic glioma
     Dosage: 550 MG/M2/DOSE WITH 21 DAYS THREE CYCLES OF INDUCTION
     Route: 065
  2. CARBOPLATIN [Suspect]
     Active Substance: CARBOPLATIN
     Dosage: NINE CYCLES CONSOLIDATION EVERY 28 DAYS
     Route: 065
  3. VINCRISTINE [Suspect]
     Active Substance: VINCRISTINE
     Indication: Optic glioma
     Dosage: 1.5 MG/M2/DOSE FOR 21 DAYS THREE CYCLES OF INDUCTION
     Route: 065
  4. VINCRISTINE [Suspect]
     Active Substance: VINCRISTINE
     Dosage: NINE CYCLES CONSOLIDATION EVERY 28 DAYS
     Route: 065

REACTIONS (2)
  - Neoplasm progression [Unknown]
  - Off label use [Unknown]
